FAERS Safety Report 4104770 (Version 4)
Quarter: 2014Q2

REPORT INFORMATION
  Report Type: Spontaneous
  Country: US (occurrence: US)
  Receive Date: 20040302
  Receipt Date: 20140428
  Transmission Date: 20141212
  Serious: Yes (Hospitalization, Other)
  Sender: FDA-Public Use
  Company Number: 192485

PATIENT
  Age: 37 Year
  Sex: Female
  Weight: 97 kg

DRUGS (7)
  1. AVONEX [Suspect]
     Indication: MULTIPLE SCLEROSIS
     Route: 030
  2. AVONEX [Suspect]
     Indication: MULTIPLE SCLEROSIS
     Route: 030
     Dates: start: 1996
  3. AVONEX [Suspect]
     Indication: MULTIPLE SCLEROSIS
     Route: 030
     Dates: start: 19970216, end: 200305
  4. AVONEX [Suspect]
     Indication: MULTIPLE SCLEROSIS
     Route: 030
     Dates: start: 20061120, end: 20130401
  5. LISINOPRIL-HYDROCHLOROTHIAZIDE [Concomitant]
     Route: 048
  6. PARLODEL [Concomitant]
     Route: 048
  7. DULCOLAX [Concomitant]
     Route: 054

REACTIONS (7)
  - Gallbladder operation [Unknown]
  - Intracranial aneurysm [Not Recovered/Not Resolved]
  - Fall [Recovered/Resolved]
  - Depression [Recovered/Resolved]
  - Aneurysm [Recovered/Resolved]
  - Coma [Recovered/Resolved]
  - Multiple sclerosis relapse [Recovered/Resolved]
